FAERS Safety Report 4651989-7 (Version None)
Quarter: 2005Q2

REPORT INFORMATION
  Report Type: 
  Country: None (occurrence: None)
  Receive Date: 20050502
  Receipt Date: 20050414
  Transmission Date: 20051028
  Serious: No
  Sender: FDA-Public Use
  Company Number: US-2004-032107

PATIENT
  Age: 52 Year
  Sex: Male
  Weight: 94.9 kg

DRUGS (5)
  1. BETASERON [Suspect]
     Indication: MULTIPLE SCLEROSIS
     Dosage: 8 MIU, EVERY 3 D, SUBCUTANEOUS
     Route: 058
     Dates: start: 20040827
  2. NORVASC   /DEN/(AMLODIPINE BESILATE) [Concomitant]
  3. PRAVACID (LANSOPRAZOLE) [Concomitant]
  4. PAXIL [Concomitant]
  5. LIPITOR   / NET/(ATORVASTATIN CALCIUM) [Concomitant]

REACTIONS (6)
  - AORTIC OCCLUSION [None]
  - ARRHYTHMIA [None]
  - ASTHENIA [None]
  - BLOOD PRESSURE INCREASED [None]
  - SUPRAVENTRICULAR EXTRASYSTOLES [None]
  - VASCULAR BYPASS GRAFT [None]
